FAERS Safety Report 5618471-1 (Version None)
Quarter: 2008Q1

REPORT INFORMATION
  Report Type: 
  Country: None (occurrence: None)
  Receive Date: 20080207
  Receipt Date: 20080128
  Transmission Date: 20080703
  Serious: Yes (Other)
  Sender: FDA-Public Use
  Company Number: B0359802A

PATIENT
  Age: 42 Year
  Sex: Male

DRUGS (1)
  1. SEROXAT [Suspect]
     Indication: ANXIETY
     Route: 065
     Dates: start: 20001120

REACTIONS (22)
  - AGGRESSION [None]
  - AGITATION [None]
  - CONFUSIONAL STATE [None]
  - DEPRESSION [None]
  - DEREALISATION [None]
  - DIARRHOEA [None]
  - DISSOCIATION [None]
  - DISTURBANCE IN ATTENTION [None]
  - DIZZINESS [None]
  - DRUG WITHDRAWAL SYNDROME [None]
  - ELECTRIC SHOCK [None]
  - GAIT DISTURBANCE [None]
  - HEADACHE [None]
  - HOMICIDE [None]
  - HYPERACUSIS [None]
  - HYPERHIDROSIS [None]
  - INFLUENZA [None]
  - MEMORY IMPAIRMENT [None]
  - NIGHTMARE [None]
  - PARANOIA [None]
  - PHOTOSENSITIVITY REACTION [None]
  - SLEEP DISORDER [None]
